FAERS Safety Report 18593244 (Version 1)
Quarter: 2020Q4

REPORT INFORMATION
  Report Type: Spontaneous
  Country: FR (occurrence: FR)
  Receive Date: 20201208
  Receipt Date: 20201208
  Transmission Date: 20210114
  Serious: Yes (Hospitalization)
  Sender: FDA-Public Use
  Company Number: FR-ELI_LILLY_AND_COMPANY-FR202011012697

PATIENT
  Age: 40 Year
  Sex: Female

DRUGS (3)
  1. CORTANCYL [Suspect]
     Active Substance: PREDNISONE
     Indication: ANKYLOSING SPONDYLITIS
     Dosage: 20 MG, DAILY
     Route: 048
     Dates: start: 20201024, end: 20201112
  2. TALTZ [Suspect]
     Active Substance: IXEKIZUMAB
     Indication: ANKYLOSING SPONDYLITIS
     Dosage: 80 MG, MONTHLY (1/M)
     Route: 058
     Dates: start: 20191215
  3. METHYLPREDNISOLONE MYLAN [METHYLPREDNISOLONE [Suspect]
     Active Substance: METHYLPREDNISOLONE SODIUM SUCCINATE
     Indication: ANKYLOSING SPONDYLITIS
     Dosage: 40 MG, DAILY
     Route: 041
     Dates: start: 20201024, end: 20201028

REACTIONS (1)
  - Psychotic disorder [Recovering/Resolving]

NARRATIVE: CASE EVENT DATE: 20201112
